FAERS Safety Report 13163939 (Version 1)
Quarter: 2017Q1

REPORT INFORMATION
  Report Type: Spontaneous
  Country: IT (occurrence: US)
  Receive Date: 20170130
  Receipt Date: 20170130
  Transmission Date: 20170428
  Serious: Yes (Other)
  Sender: FDA-Public Use
  Company Number: US-CELGENEUS-USA-2017015540

PATIENT

DRUGS (2)
  1. NIVOLUMAB [Suspect]
     Active Substance: NIVOLUMAB
     Indication: ACUTE MYELOID LEUKAEMIA RECURRENT
     Route: 065
  2. AZACITIDINE INJECTABLE [Suspect]
     Active Substance: AZACITIDINE
     Indication: ACUTE MYELOID LEUKAEMIA RECURRENT
     Route: 065

REACTIONS (1)
  - Graft versus host disease [Unknown]
